FAERS Safety Report 7283447-8 (Version None)
Quarter: 2011Q1

REPORT INFORMATION
  Report Type: 
  Country: None (occurrence: None)
  Receive Date: 20110204
  Receipt Date: 20110204
  Transmission Date: 20110831
  Serious: Yes (Death)
  Sender: FDA-Public Use
  Company Number: None

PATIENT
  Age: 75 Year
  Sex: Male
  Weight: 108.8633 kg

DRUGS (1)
  1. PROPOXYPHENE HCL AND ACETAMINOPHEN [Suspect]
     Indication: DEBRIDEMENT
     Dosage: 1-2 Q4HRS. ORAL
     Route: 048
     Dates: start: 20100829, end: 20100926

REACTIONS (2)
  - SUDDEN DEATH [None]
  - ACUTE MYOCARDIAL INFARCTION [None]
